FAERS Safety Report 8926398 (Version 1)
Quarter: 2012Q4

REPORT INFORMATION
  Report Type: Report from Study
  Country: DE (occurrence: DE)
  Receive Date: 20121127
  Receipt Date: 20121127
  Transmission Date: 20130627
  Serious: Yes (Hospitalization)
  Sender: FDA-Public Use
  Company Number: DE-GLAXOSMITHKLINE-B0847615A

PATIENT
  Sex: Female
  Weight: 83.5 kg

DRUGS (6)
  1. LAPATINIB [Suspect]
     Indication: BREAST CANCER
     Dosage: 500MG per day
     Route: 048
     Dates: start: 20120809
  2. PACLITAXEL [Suspect]
     Indication: BREAST CANCER
     Dosage: 159MG Weekly
     Route: 042
     Dates: start: 20120809
  3. CARBOPLATIN [Suspect]
     Indication: BREAST CANCER
     Route: 042
     Dates: start: 20120809
  4. MYOCET [Suspect]
     Indication: BREAST CANCER
     Dosage: 40MG Weekly
     Route: 042
     Dates: start: 20120809
  5. TRASTUZUMAB [Suspect]
     Indication: BREAST CANCER
     Dosage: 514MG Every 3 weeks
     Route: 042
     Dates: start: 20120809
  6. L-THYROXIN [Concomitant]
     Dosage: 125UG per day
     Dates: start: 2001

REACTIONS (1)
  - General physical health deterioration [Recovered/Resolved]
